FAERS Safety Report 8441805 (Version 5)
Quarter: 2013Q2

REPORT INFORMATION
  Report Type: Spontaneous
  Country: DK (occurrence: DK)
  Receive Date: 20120305
  Receipt Date: 20130408
  Transmission Date: 20140414
  Serious: Yes (Other)
  Sender: FDA-Public Use
  Company Number: DK-PFIZER INC-2012051906

PATIENT
  Age: 25 Year
  Sex: Male
  Weight: 88 kg

DRUGS (4)
  1. LYRICA [Suspect]
     Indication: ANXIETY
     Dosage: 150 MG, 2X/DAY
     Dates: start: 20110623
  2. LYRICA [Suspect]
     Indication: GENERALISED ANXIETY DISORDER
     Dosage: 150 MG IN THE MORNING AND 75 MG IN THE EVENING
  3. VENLAFAXINE [Concomitant]
     Dosage: 150 MG, DAILY
  4. TRUXAL [Concomitant]
     Dosage: 750 MG, UNK

REACTIONS (2)
  - Drug abuse [Unknown]
  - Withdrawal syndrome [Unknown]
